FAERS Safety Report 4988015-6 (Version None)
Quarter: 2006Q1

REPORT INFORMATION
  Report Type: 
  Country: None (occurrence: None)
  Receive Date: 20060309
  Receipt Date: 20050908
  Transmission Date: 20060701
  Serious: Yes (Hospitalization)
  Sender: FDA-Public Use
  Company Number: GXBR2005US01407

PATIENT
  Age: 19 Year
  Sex: Female
  Weight: 48.5 kg

DRUGS (2)
  1. MEFLOQUINE HCL [Suspect]
     Indication: MALARIA PROPHYLAXIS
     Dosage: 250 MG, QW, ORAL
     Route: 048
     Dates: start: 20050710, end: 20050814
  2. MOTRIN [Concomitant]

REACTIONS (11)
  - ANXIETY [None]
  - ASTHENIA [None]
  - BACK PAIN [None]
  - DISTURBANCE IN ATTENTION [None]
  - DYSPHEMIA [None]
  - HEADACHE [None]
  - HYPOAESTHESIA [None]
  - MUSCLE SPASMS [None]
  - NECK PAIN [None]
  - PANIC ATTACK [None]
  - TREMOR [None]
